FAERS Safety Report 6158271-X (Version None)
Quarter: 2009Q2

REPORT INFORMATION
  Report Type: 
  Country: None (occurrence: None)
  Receive Date: 20090417
  Receipt Date: 20070403
  Transmission Date: 20091009
  Serious: No
  Sender: FDA-Public Use
  Company Number: US-ASTRAZENECA-2006UW10687

PATIENT
  Age: 18634 Day
  Sex: Male

DRUGS (19)
  1. SEROQUEL [Suspect]
     Route: 048
  2. LEXAPRO [Concomitant]
  3. NEURONTIN [Concomitant]
  4. ATIVAN [Concomitant]
  5. SINGULAIR [Concomitant]
  6. NEXIUM [Concomitant]
  7. WELLBUTRIN [Concomitant]
  8. VISTARIL [Concomitant]
  9. GEODON [Concomitant]
  10. GLUCOPHAGE [Concomitant]
  11. LIPITOR [Concomitant]
  12. BENADRYL [Concomitant]
  13. ASPIRIN [Concomitant]
  14. HYTRIN [Concomitant]
  15. ALBUTEROL [Concomitant]
  16. DOXA [Concomitant]
  17. THEOPHILLINE [Concomitant]
  18. COMBIVENT [Concomitant]
  19. VICODIN [Concomitant]

REACTIONS (19)
  - ARTHRITIS [None]
  - ASTHMA [None]
  - CHEST PAIN [None]
  - CHRONIC OBSTRUCTIVE PULMONARY DISEASE [None]
  - COUGH [None]
  - DIARRHOEA [None]
  - DYSPEPSIA [None]
  - FAECES DISCOLOURED [None]
  - FALL [None]
  - FATIGUE [None]
  - HYPERTENSION [None]
  - HYPOAESTHESIA [None]
  - HYPOAESTHESIA FACIAL [None]
  - MUSCULOSKELETAL PAIN [None]
  - OBSESSIVE-COMPULSIVE DISORDER [None]
  - PROSTATOMEGALY [None]
  - RHINORRHOEA [None]
  - SPINAL OSTEOARTHRITIS [None]
  - TYPE 2 DIABETES MELLITUS [None]
